FAERS Safety Report 8567827-6 (Version None)
Quarter: 2012Q3

REPORT INFORMATION
  Report Type: 
  Country: None (occurrence: None)
  Receive Date: 20120803
  Receipt Date: 20120731
  Transmission Date: 20120928
  Serious: Yes (Hospitalization, Other)
  Sender: FDA-Public Use
  Company Number: US-PFIZER INC-2012154004

PATIENT
  Sex: Female
  Weight: 80.272 kg

DRUGS (1)
  1. LIPITOR [Suspect]
     Indication: BLOOD CHOLESTEROL ABNORMAL
     Dosage: 40 MG, DAILY

REACTIONS (3)
  - ALOPECIA [None]
  - HODGKIN'S DISEASE [None]
  - WHITE BLOOD CELL COUNT DECREASED [None]
